FAERS Safety Report 9548510 (Version 1)
Quarter: 2013Q2

REPORT INFORMATION
  Report Type: Spontaneous
  Country: US (occurrence: None)
  Receive Date: 20130606
  Receipt Date: 20130606
  Transmission Date: 20140414
  Serious: Yes (Other)
  Sender: FDA-Public Use
  Company Number: 1303USA000735

PATIENT
  Age: 75 Year
  Sex: Female

DRUGS (1)
  1. ZIOPTAN [Suspect]
     Route: 047

REACTIONS (2)
  - Alopecia [None]
  - Urinary tract infection [None]
